FAERS Safety Report 5186455-6 (Version None)
Quarter: 2006Q4

REPORT INFORMATION
  Report Type: 
  Country: None (occurrence: None)
  Receive Date: 20061213
  Receipt Date: 20061127
  Transmission Date: 20070319
  Serious: Yes (Other)
  Sender: FDA-Public Use
  Company Number: S06-CAN-05129-01

PATIENT
  Age: 32 Year
  Sex: Female

DRUGS (2)
  1. CELEXA [Suspect]
     Dosage: 20 MG QD PO
     Route: 048
  2. BIAXIN [Suspect]
     Dosage: 500 MG BID PO
     Route: 048

REACTIONS (4)
  - AGITATION [None]
  - FLUSHING [None]
  - GAIT DISTURBANCE [None]
  - HYPERHIDROSIS [None]
